FAERS Safety Report 8228939-X (Version None)
Quarter: 2012Q1

REPORT INFORMATION
  Report Type: 
  Country: None (occurrence: None)
  Receive Date: 20120322
  Receipt Date: 20120315
  Transmission Date: 20120608
  Serious: Yes (Hospitalization)
  Sender: FDA-Public Use
  Company Number: JP-UCBSA-053519

PATIENT
  Age: 36 Year
  Sex: Male

DRUGS (3)
  1. PHENOBARBITAL TAB [Concomitant]
  2. KEPPRA [Suspect]
     Indication: EPILEPSY
     Route: 048
  3. PHENYTOIN SODIUM CAP [Concomitant]

REACTIONS (1)
  - AGRANULOCYTOSIS [None]
